FAERS Safety Report 15621989 (Version 2)
Quarter: 2019Q4

REPORT INFORMATION
  Report Type: Spontaneous
  Country: CA (occurrence: CA)
  Receive Date: 20181115
  Receipt Date: 20191203
  Transmission Date: 20200122
  Serious: Yes (Other)
  Sender: FDA-Public Use
  Company Number: CA-PFIZER INC-2018463069

PATIENT
  Age: 45 Year
  Sex: Female

DRUGS (6)
  1. XELJANZ [Suspect]
     Active Substance: TOFACITINIB CITRATE
     Indication: RHEUMATOID ARTHRITIS
     Dosage: 5 MG, 2X/DAY
     Route: 048
     Dates: start: 20180806
  2. METHOTREXATE SODIUM. [Suspect]
     Active Substance: METHOTREXATE SODIUM
     Dosage: 20 MG, UNK
     Route: 065
     Dates: start: 20180511, end: 20180706
  3. METHOTREXATE SODIUM. [Suspect]
     Active Substance: METHOTREXATE SODIUM
     Dosage: 25 MG, UNK
     Route: 065
     Dates: start: 20180706
  4. TOFACITINIB [Concomitant]
     Active Substance: TOFACITINIB
     Dosage: UNK
  5. HYDROXYCHLOROQUINE [Concomitant]
     Active Substance: HYDROXYCHLOROQUINE
     Dosage: 200 MG, 1X/DAY
     Dates: start: 20180511
  6. NAPROSYN E [Concomitant]
     Active Substance: NAPROXEN
     Dosage: 500 MG, 2X/DAY

REACTIONS (2)
  - Polyarthritis [Recovering/Resolving]
  - Therapeutic product effect incomplete [Recovering/Resolving]
